FAERS Safety Report 16362774 (Version 2)
Quarter: 2019Q2

REPORT INFORMATION
  Report Type: Report from Study
  Country: None (occurrence: US)
  Receive Date: 20190528
  Receipt Date: 20190626
  Transmission Date: 20190711
  Serious: Yes (Other)
  Sender: FDA-Public Use
  Company Number: US-ABBVIE-19K-163-2796048-00

PATIENT
  Age: 50 Year
  Sex: Female

DRUGS (1)
  1. HUMIRA [Suspect]
     Active Substance: ADALIMUMAB
     Indication: RHEUMATOID ARTHRITIS
     Dosage: CITRATE FREE
     Route: 058

REACTIONS (12)
  - Multiple sclerosis [Not Recovered/Not Resolved]
  - Ophthalmoplegic migraine [Unknown]
  - Hypertension [Recovering/Resolving]
  - Seizure [Unknown]
  - Arthralgia [Recovering/Resolving]
  - Pharyngitis streptococcal [Recovering/Resolving]
  - Pain [Recovering/Resolving]
  - Stress [Unknown]
  - Seizure [Recovered/Resolved]
  - Migraine [Unknown]
  - Injury [Unknown]
  - Hypoaesthesia [Recovered/Resolved]

NARRATIVE: CASE EVENT DATE: 2019
